FAERS Safety Report 8097754-2 (Version None)
Quarter: 2012Q1

REPORT INFORMATION
  Report Type: 
  Country: None (occurrence: None)
  Receive Date: 20120128
  Receipt Date: 20110718
  Transmission Date: 20120608
  Serious: No
  Sender: FDA-Public Use
  Company Number: US-ABBOTT-11P-163-0839913-00

PATIENT
  Age: 17 Year
  Sex: Female

DRUGS (5)
  1. MULTIVITAMIN [Concomitant]
     Indication: VITAMIN SUPPLEMENTATION
  2. MERCAPTOPURINE [Concomitant]
     Indication: CROHN'S DISEASE
  3. CALCIUM [Concomitant]
     Indication: MINERAL SUPPLEMENTATION
  4. HUMIRA [Suspect]
     Indication: CROHN'S DISEASE
     Dates: start: 20110427, end: 20110601
  5. IRON [Concomitant]
     Indication: MINERAL SUPPLEMENTATION

REACTIONS (2)
  - CONSTIPATION [None]
  - ACNE [None]
